FAERS Safety Report 23543873 (Version 1)
Quarter: 2024Q1

REPORT INFORMATION
  Report Type: Spontaneous
  Country: US (occurrence: US)
  Receive Date: 20240220
  Receipt Date: 20240220
  Transmission Date: 20240410
  Serious: No
  Sender: FDA-Public Use
  Company Number: US-APIL-2309638US

PATIENT
  Age: 61 Year
  Sex: Female
  Weight: 58 kg

DRUGS (7)
  1. LASTACAFT [Suspect]
     Active Substance: ALCAFTADINE
     Indication: Allergy prophylaxis
     Dosage: TIME INTERVAL: AS NECESSARY: 1 DROP IN EACH EYE
     Route: 047
     Dates: start: 20230323, end: 20230323
  2. LASTACAFT [Suspect]
     Active Substance: ALCAFTADINE
     Indication: Allergy prophylaxis
     Dosage: TIME INTERVAL: AS NECESSARY: 1 DROP IN EACH EYE
     Route: 047
     Dates: start: 202212, end: 202212
  3. LINZESS [Concomitant]
     Active Substance: LINACLOTIDE
     Indication: Constipation
     Dosage: DOSE DESC: UNK
  4. ZYRTEC [Concomitant]
     Active Substance: CETIRIZINE HYDROCHLORIDE
     Indication: Hypersensitivity
     Dosage: DOSE DESC: UNK
  5. SINGULAIR [Concomitant]
     Active Substance: MONTELUKAST SODIUM
     Indication: Hypersensitivity
  6. MAGNESIUM [Concomitant]
     Active Substance: MAGNESIUM
     Indication: Product used for unknown indication
     Dosage: DOSE DESC: UNK
  7. FISH OIL [Concomitant]
     Active Substance: FISH OIL
     Indication: Product used for unknown indication
     Dosage: DOSE DESC: UNK

REACTIONS (7)
  - Abnormal sensation in eye [Recovering/Resolving]
  - Hypersensitivity [Not Recovered/Not Resolved]
  - Excessive eye blinking [Recovering/Resolving]
  - Eye pain [Recovering/Resolving]
  - Lacrimation increased [Recovering/Resolving]
  - Ocular hyperaemia [Not Recovered/Not Resolved]
  - Eye discharge [Recovering/Resolving]

NARRATIVE: CASE EVENT DATE: 20221201
